FAERS Safety Report 17208105 (Version 1)
Quarter: 2019Q4

REPORT INFORMATION
  Report Type: Spontaneous
  Country: US (occurrence: US)
  Receive Date: 20191227
  Receipt Date: 20191227
  Transmission Date: 20200122
  Serious: Yes (Hospitalization, Other)
  Sender: FDA-Public Use
  Company Number: US-UCBSA-2017009876

PATIENT
  Age: 67 Year
  Sex: Female

DRUGS (4)
  1. LEVETIRACETAM. [Suspect]
     Active Substance: LEVETIRACETAM
     Indication: SEIZURE
     Dosage: 1000 MG/DAY
  2. VALPROIC ACID. [Concomitant]
     Active Substance: VALPROIC ACID
     Dosage: 2000 MG/DAY
  3. LACOSAMIDE. [Suspect]
     Active Substance: LACOSAMIDE
     Indication: SEIZURE
     Dosage: UNK
  4. VALPROIC ACID. [Concomitant]
     Active Substance: VALPROIC ACID
     Indication: SEIZURE
     Dosage: 1500 MG/DAY

REACTIONS (2)
  - Confusional state [Unknown]
  - Juvenile myoclonic epilepsy [Recovered/Resolved]
